FAERS Safety Report 8457413-0 (Version None)
Quarter: 2012Q2

REPORT INFORMATION
  Report Type: 
  Country: None (occurrence: None)
  Receive Date: 20120621
  Receipt Date: 20120618
  Transmission Date: 20120825
  Serious: Yes (Hospitalization)
  Sender: FDA-Public Use
  Company Number: IE-TEVA-334741USA

PATIENT
  Age: 65 Year
  Sex: Male
  Weight: 93.1 kg

DRUGS (17)
  1. LIDOCAINE [Concomitant]
     Indication: BACK PAIN
     Dates: start: 20120323
  2. ACETAMINOPHEN [Concomitant]
     Dates: start: 20120323
  3. PREDNISOLONE [Suspect]
     Indication: LYMPHOMA
     Dosage: 10 MILLIGRAM;
     Route: 048
     Dates: start: 20111114, end: 20120328
  4. HEPARIN [Concomitant]
     Indication: PULMONARY EMBOLISM
     Dates: start: 20110509, end: 20120405
  5. TAMSULOSIN HCL [Concomitant]
     Indication: LOWER URINARY TRACT SYMPTOMS
     Dates: start: 20110810
  6. OXYCODONE HCL [Concomitant]
     Indication: BACK PAIN
     Dosage: 20 MILLIGRAM;
     Dates: start: 20120323
  7. NULYTELY [Concomitant]
     Dates: start: 20120324, end: 20120402
  8. PREDNISOLONE [Suspect]
     Indication: CHRONIC OBSTRUCTIVE PULMONARY DISEASE
  9. ESOMEPRAZOLE [Concomitant]
     Indication: DYSPEPSIA
     Dosage: 40 MILLIGRAM;
     Dates: start: 20111114
  10. BISOPROLOL FUMARATE [Concomitant]
     Indication: TACHYCARDIA
     Dosage: 1.25 MILLIGRAM;
     Dates: start: 20120301
  11. OXYCODONE HCL [Concomitant]
     Dates: start: 20120323
  12. CALCIUM CARBONATE [Concomitant]
     Dates: start: 20120323
  13. PREGABALIN [Concomitant]
     Indication: BACK PAIN
     Dosage: 100 MILLIGRAM;
     Dates: start: 20120326, end: 20120402
  14. RITUXIMAB [Suspect]
     Indication: NON-HODGKIN'S LYMPHOMA
     Route: 042
     Dates: start: 20120202, end: 20120423
  15. ALLOPURINOL [Concomitant]
     Indication: PROPHYLAXIS
     Route: 048
     Dates: start: 20091209
  16. DOMPERIDONE MALEATE [Concomitant]
     Dates: start: 20120324, end: 20120401
  17. TREANDA [Suspect]
     Indication: NON-HODGKIN'S LYMPHOMA
     Route: 042
     Dates: start: 20120202, end: 20120423

REACTIONS (1)
  - PNEUMONITIS [None]
